FAERS Safety Report 19580087 (Version 1)
Quarter: 2021Q3

REPORT INFORMATION
  Report Type: Spontaneous
  Country: GR (occurrence: GR)
  Receive Date: 20210720
  Receipt Date: 20210720
  Transmission Date: 20211014
  Serious: Yes (Other)
  Sender: FDA-Public Use
  Company Number: GR-ORGANON-O2107GRC001396

PATIENT
  Age: 62 Year
  Sex: Female
  Weight: 65 kg

DRUGS (12)
  1. MAXUDIN [Concomitant]
     Active Substance: PRAVASTATIN SODIUM
     Indication: PRODUCT USED FOR UNKNOWN INDICATION
     Dosage: 40 MG
     Dates: start: 20210530, end: 20210613
  2. SIMVASTATIN. [Concomitant]
     Active Substance: SIMVASTATIN
     Indication: PRODUCT USED FOR UNKNOWN INDICATION
     Dosage: UNK
  3. EVIOL [Concomitant]
     Indication: PRODUCT USED FOR UNKNOWN INDICATION
     Dosage: UNK
     Dates: start: 20210530, end: 20210613
  4. COVERSYL [PERINDOPRIL ARGININE] [Suspect]
     Active Substance: PERINDOPRIL ARGININE
     Indication: PRODUCT USED FOR UNKNOWN INDICATION
     Dosage: UNK
  5. ZODIN [OMEGA?3?ACID ETHYL ESTER] [Concomitant]
     Indication: PRODUCT USED FOR UNKNOWN INDICATION
     Dosage: UNK
     Dates: start: 20210530, end: 20210613
  6. COSOPT [Concomitant]
     Active Substance: DORZOLAMIDE HYDROCHLORIDE\TIMOLOL MALEATE
     Indication: PRODUCT USED FOR UNKNOWN INDICATION
     Dosage: UNK
  7. INEGY [Suspect]
     Active Substance: EZETIMIBE\SIMVASTATIN
     Indication: PRODUCT USED FOR UNKNOWN INDICATION
     Dosage: 10/40 MG, QD
     Route: 048
  8. CONCOR [Concomitant]
     Active Substance: BISOPROLOL FUMARATE
     Indication: PRODUCT USED FOR UNKNOWN INDICATION
     Dosage: UNK
  9. INEGY [Suspect]
     Active Substance: EZETIMIBE\SIMVASTATIN
     Dosage: 10/20 MG
     Route: 065
     Dates: start: 2019, end: 20210417
  10. NEURONTIN [Concomitant]
     Active Substance: GABAPENTIN
     Indication: PRODUCT USED FOR UNKNOWN INDICATION
     Dosage: UNK
     Dates: start: 20210530, end: 20210613
  11. LEXOTANIL [Concomitant]
     Active Substance: BROMAZEPAM
     Indication: PRODUCT USED FOR UNKNOWN INDICATION
     Dosage: UNK
  12. NEXIUM I.V. [Concomitant]
     Active Substance: ESOMEPRAZOLE SODIUM
     Indication: PRODUCT USED FOR UNKNOWN INDICATION
     Dosage: UNK

REACTIONS (35)
  - Swelling face [Unknown]
  - Myalgia [Recovering/Resolving]
  - Anxiety [Not Recovered/Not Resolved]
  - Abnormal dreams [Not Recovered/Not Resolved]
  - Confusional state [Recovered/Resolved]
  - Coccydynia [Unknown]
  - Wrist fracture [Unknown]
  - Product dose omission issue [Recovered/Resolved]
  - Blood glucose abnormal [Unknown]
  - Fall [Recovered/Resolved]
  - Loss of consciousness [Unknown]
  - Arthralgia [Recovering/Resolving]
  - Adverse event [Unknown]
  - Kyphosis [Unknown]
  - Psoriasis [Not Recovered/Not Resolved]
  - Blood cholesterol increased [Unknown]
  - Osteopenia [Unknown]
  - Spinal column injury [Unknown]
  - Muscular weakness [Unknown]
  - Tooth fracture [Unknown]
  - Gastrointestinal disorder [Unknown]
  - Vomiting [Unknown]
  - Muscle swelling [Unknown]
  - Nausea [Unknown]
  - Blood triglycerides increased [Unknown]
  - Arrhythmia [Unknown]
  - Syncope [Recovered/Resolved]
  - Musculoskeletal discomfort [Unknown]
  - Amnesia [Recovered/Resolved]
  - Pruritus [Recovering/Resolving]
  - Dizziness [Unknown]
  - Alopecia [Unknown]
  - Contusion [Unknown]
  - Accident [Recovered/Resolved]
  - Haematoma [Unknown]

NARRATIVE: CASE EVENT DATE: 2019
